FAERS Safety Report 18353644 (Version 1)
Quarter: 2020Q4

REPORT INFORMATION
  Report Type: Spontaneous
  Country: US (occurrence: US)
  Receive Date: 20201006
  Receipt Date: 20201006
  Transmission Date: 20210114
  Serious: No
  Sender: FDA-Public Use
  Company Number: US-ROCHE-2382074

PATIENT
  Sex: Female

DRUGS (9)
  1. PREDNISONE. [Concomitant]
     Active Substance: PREDNISONE
  2. FISH OIL [Concomitant]
     Active Substance: FISH OIL
  3. FLUCONAZOLE. [Concomitant]
     Active Substance: FLUCONAZOLE
  4. PYRIDOSTIGMINE [Concomitant]
     Active Substance: PYRIDOSTIGMINE
  5. ZELBORAF [Suspect]
     Active Substance: VEMURAFENIB
     Indication: LYMPHADENOPATHY
     Dosage: 4 TABLETS WITH FULL GLASS OF WATER
     Route: 048
     Dates: start: 201811
  6. VITAMIN B12 [Concomitant]
     Active Substance: CYANOCOBALAMIN
  7. SYNTHROID [Concomitant]
     Active Substance: LEVOTHYROXINE SODIUM
  8. LIOTHYRONINE [Concomitant]
     Active Substance: LIOTHYRONINE
  9. ONDANSETRON [Concomitant]
     Active Substance: ONDANSETRON
     Dosage: TBD

REACTIONS (2)
  - Constipation [Not Recovered/Not Resolved]
  - Vomiting [Not Recovered/Not Resolved]
